FAERS Safety Report 4910253-9 (Version None)
Quarter: 2006Q1

REPORT INFORMATION
  Report Type: 
  Country: None (occurrence: None)
  Receive Date: 20060209
  Receipt Date: 20060126
  Transmission Date: 20060701
  Serious: Yes (Other)
  Sender: FDA-Public Use
  Company Number: US200601004507

PATIENT
  Sex: Male

DRUGS (3)
  1. GEMZAR [Suspect]
     Indication: PANCREATIC CARCINOMA METASTATIC
     Dosage: 1000 MG/M2, OTHER, INTRAVENOUS
     Route: 042
  2. CISPLATIN [Concomitant]
  3. DEXAMETHASONE [Concomitant]

REACTIONS (3)
  - DRUG TOXICITY [None]
  - PLEURAL EFFUSION [None]
  - RENAL FAILURE [None]
